FAERS Safety Report 9195369 (Version 1)
Quarter: 2013Q1

REPORT INFORMATION
  Report Type: Spontaneous
  Country: US (occurrence: US)
  Receive Date: 20130328
  Receipt Date: 20130328
  Transmission Date: 20140127
  Serious: No
  Sender: FDA-Public Use
  Company Number: US-ALLERGAN-1300278US

PATIENT
  Sex: Female

DRUGS (3)
  1. LUMIGAN [Suspect]
     Indication: GROWTH OF EYELASHES
     Dosage: UNK UNK, QAM
     Route: 061
  2. AMLODIPINE [Concomitant]
     Indication: HYPERTENSION
     Dosage: 10 MG, UNK
     Route: 048
  3. ALENDRONATE [Concomitant]
     Dosage: 70 MG, UNK
     Route: 048

REACTIONS (2)
  - Off label use [Unknown]
  - Therapeutic response unexpected [Unknown]
